FAERS Safety Report 5679272-1 (Version None)
Quarter: 2008Q1

REPORT INFORMATION
  Report Type: 
  Country: None (occurrence: None)
  Receive Date: 20080321
  Receipt Date: 20080312
  Transmission Date: 20080703
  Serious: Yes (Death)
  Sender: FDA-Public Use
  Company Number: 2008AL001581

PATIENT
  Age: 40 Year
  Sex: Male

DRUGS (1)
  1. PHENOBARBITAL TAB [Suspect]
     Indication: EPILEPSY

REACTIONS (3)
  - BRONCHOPNEUMONIA [None]
  - CHOLANGITIS [None]
  - HEPATIC NECROSIS [None]
